FAERS Safety Report 24951901 (Version 1)
Quarter: 2025Q1

REPORT INFORMATION
  Report Type: Spontaneous
  Country: IT (occurrence: IT)
  Receive Date: 20250210
  Receipt Date: 20250210
  Transmission Date: 20250409
  Serious: Yes (Other)
  Sender: NOVO NORDISK
  Company Number: IT-NOVOPROD-1361674

PATIENT
  Age: 32 Year
  Sex: Female
  Weight: 66 kg

DRUGS (1)
  1. LIRAGLUTIDE [Suspect]
     Active Substance: LIRAGLUTIDE
     Indication: Product used for unknown indication
     Dosage: 1.8 MG, QD

REACTIONS (2)
  - Breast necrosis [Recovered/Resolved]
  - Impaired healing [Recovered/Resolved]
